FAERS Safety Report 8082886-5 (Version None)
Quarter: 2012Q1

REPORT INFORMATION
  Report Type: 
  Country: None (occurrence: None)
  Receive Date: 20120127
  Receipt Date: 20110126
  Transmission Date: 20120608
  Serious: No
  Sender: FDA-Public Use
  Company Number: US-ABBOTT-11P-163-0700605-00

PATIENT
  Age: 38 Year
  Sex: Female

DRUGS (3)
  1. DEPO-PROVERA [Interacting]
     Indication: MENSTRUATION IRREGULAR
  2. PRISTIQ [Concomitant]
     Indication: PRODUCT USED FOR UNKNOWN INDICATION
  3. HUMIRA [Suspect]
     Indication: CROHN'S DISEASE
     Dates: start: 20110121

REACTIONS (5)
  - COLD SWEAT [None]
  - HOT FLUSH [None]
  - FEELING COLD [None]
  - DRUG INTERACTION [None]
  - DIARRHOEA [None]
